FAERS Safety Report 5131271-4 (Version None)
Quarter: 2006Q4

REPORT INFORMATION
  Report Type: 
  Country: None (occurrence: None)
  Receive Date: 20061016
  Receipt Date: 20061004
  Transmission Date: 20070319
  Serious: Yes (Hospitalization, Other)
  Sender: FDA-Public Use
  Company Number: 2006047101

PATIENT
  Age: 66 Year
  Sex: Female
  Weight: 63.5036 kg

DRUGS (8)
  1. NORVASC [Suspect]
     Indication: HYPERTENSION
     Dosage: (5 MG)
  2. LIPITOR [Suspect]
     Indication: BLOOD CHOLESTEROL INCREASED
     Dosage: 40 MG (40 MG, 1 IN 1 D), ORAL
     Route: 048
     Dates: end: 20020101
  3. ZOLOFT [Suspect]
  4. LYRICA [Suspect]
     Indication: NEUROPATHY
     Dosage: (DAILY), ORAL
     Route: 048
  5. VALTREX [Suspect]
     Indication: HERPES ZOSTER
     Dates: start: 20060301, end: 20060301
  6. ATENOLOL [Concomitant]
  7. VALIUM [Concomitant]
  8. ASPIRIN [Concomitant]

REACTIONS (18)
  - ABASIA [None]
  - BLOOD TRIGLYCERIDES INCREASED [None]
  - CHOKING [None]
  - DIABETES MELLITUS [None]
  - DIZZINESS [None]
  - DRUG INEFFECTIVE [None]
  - DYSPHAGIA [None]
  - FEELING ABNORMAL [None]
  - HERPES ZOSTER [None]
  - HYPERTENSION [None]
  - INTESTINAL POLYP [None]
  - LYMPHANGIOMA [None]
  - MYALGIA [None]
  - NEUROPATHY [None]
  - OESOPHAGITIS [None]
  - PAIN [None]
  - RASH [None]
  - WEIGHT INCREASED [None]
